FAERS Safety Report 13088767 (Version 1)
Quarter: 2017Q1

REPORT INFORMATION
  Report Type: Spontaneous
  Country: US (occurrence: US)
  Receive Date: 20170105
  Receipt Date: 20170105
  Transmission Date: 20170428
  Serious: Yes (Other)
  Sender: FDA-Public Use
  Company Number: None

PATIENT
  Age: 45 Year
  Sex: Female
  Weight: 42.22 kg

DRUGS (15)
  1. GLUTOTHIONE [Concomitant]
  2. NECON [Concomitant]
     Active Substance: ETHINYL ESTRADIOL\NORETHINDRONE
  3. VYVANSE [Concomitant]
     Active Substance: LISDEXAMFETAMINE DIMESYLATE
  4. LANTUS [Concomitant]
     Active Substance: INSULIN GLARGINE
  5. ASMANEX [Concomitant]
     Active Substance: MOMETASONE FUROATE
  6. FISH OIL [Concomitant]
     Active Substance: FISH OIL
  7. VITAMIN C [Concomitant]
     Active Substance: ASCORBIC ACID
  8. VITAMIN B12 [Concomitant]
     Active Substance: CYANOCOBALAMIN
  9. INVOKANA [Suspect]
     Active Substance: CANAGLIFLOZIN
     Indication: DIABETES MELLITUS
     Dosage: QUANITY - 1/2 TAB DAILY
     Route: 048
     Dates: start: 20150121, end: 20161026
  10. NASONEX [Concomitant]
     Active Substance: MOMETASONE FUROATE
  11. BIOTIN [Concomitant]
     Active Substance: BIOTIN
  12. VICTOZA [Concomitant]
     Active Substance: LIRAGLUTIDE
  13. SINGULAIR [Concomitant]
     Active Substance: MONTELUKAST SODIUM
  14. MAXALT [Concomitant]
     Active Substance: RIZATRIPTAN BENZOATE
  15. SOMA [Concomitant]
     Active Substance: CARISOPRODOL

REACTIONS (8)
  - Acidosis [None]
  - Blood glucose abnormal [None]
  - Headache [None]
  - Urinary tract infection [None]
  - Nausea [None]
  - Fatigue [None]
  - Asthenia [None]
  - Muscle spasms [None]
